FAERS Safety Report 9259428 (Version 1)
Quarter: 2013Q2

REPORT INFORMATION
  Report Type: Spontaneous
  Country: FR (occurrence: FR)
  Receive Date: 20130428
  Receipt Date: 20130428
  Transmission Date: 20140414
  Serious: Yes (Other)
  Sender: FDA-Public Use
  Company Number: FR-TEVA-400831ISR

PATIENT
  Age: 74 Year
  Sex: Male

DRUGS (2)
  1. AZILECT [Suspect]
     Dates: start: 20120620
  2. MODOPAR [Concomitant]
     Indication: PARKINSON^S DISEASE

REACTIONS (1)
  - Neurogenic bladder [Recovered/Resolved]
